FAERS Safety Report 17058141 (Version 1)
Quarter: 2019Q4

REPORT INFORMATION
  Report Type: Spontaneous
  Country: US (occurrence: US)
  Receive Date: 20191121
  Receipt Date: 20191121
  Transmission Date: 20200122
  Serious: Yes (Other)
  Sender: FDA-Public Use
  Company Number: US-PFIZER INC-2019502218

PATIENT
  Age: 40 Year

DRUGS (1)
  1. VIAGRA [Suspect]
     Active Substance: SILDENAFIL CITRATE
     Dosage: UNK

REACTIONS (4)
  - Post-traumatic stress disorder [Unknown]
  - Deafness unilateral [Unknown]
  - Stress [Unknown]
  - Obsessive-compulsive disorder [Unknown]
